FAERS Safety Report 5083121-2 (Version None)
Quarter: 2006Q3

REPORT INFORMATION
  Report Type: 
  Country: None (occurrence: None)
  Receive Date: 20060720
  Receipt Date: 20060410
  Transmission Date: 20061208
  Serious: Yes (Hospitalization, Other)
  Sender: FDA-Public Use
  Company Number: 2006050263

PATIENT
  Age: 47 Year
  Sex: Female

DRUGS (5)
  1. CELEBREX [Suspect]
     Indication: OSTEOARTHRITIS
     Dosage: 200 MG (200 MG, 1 IN 1 D), ORAL
     Route: 048
  2. ZIAC [Concomitant]
  3. TRILEPTAL [Concomitant]
  4. TRAZODONE HCL [Concomitant]
  5. FLUOXETINE [Concomitant]

REACTIONS (1)
  - PULMONARY EMBOLISM [None]
